FAERS Safety Report 9502541 (Version 2)
Quarter: 2013Q3

REPORT INFORMATION
  Report Type: Report from Study
  Country: US (occurrence: US)
  Receive Date: 20130906
  Receipt Date: 20130918
  Transmission Date: 20140515
  Serious: Yes (Hospitalization)
  Sender: FDA-Public Use
  Company Number: US-JNJFOC-20130817457

PATIENT
  Age: 16 Year
  Sex: Male
  Weight: 68.2 kg

DRUGS (6)
  1. REMICADE [Suspect]
     Indication: INFLAMMATORY BOWEL DISEASE
     Route: 042
     Dates: start: 20130316
  2. IRON [Concomitant]
     Route: 065
  3. MULTIVITAMINS [Concomitant]
     Route: 065
  4. VITAMIN D [Concomitant]
     Route: 065
  5. PREVACID [Concomitant]
     Route: 065
  6. LACTAID [Concomitant]
     Route: 065

REACTIONS (2)
  - Rhabdomyolysis [Recovered/Resolved]
  - Cystitis haemorrhagic [Recovered/Resolved with Sequelae]
